FAERS Safety Report 22393576 (Version 7)
Quarter: 2024Q3

REPORT INFORMATION
  Report Type: Report from Study
  Country: IT (occurrence: IT)
  Receive Date: 20230601
  Receipt Date: 20240823
  Transmission Date: 20241017
  Serious: Yes (Other)
  Sender: JOHNSON AND JOHNSON
  Company Number: None

PATIENT
  Age: 51 Year
  Sex: Male
  Weight: 127 kg

DRUGS (7)
  1. RILPIVIRINE [Suspect]
     Active Substance: RILPIVIRINE
     Indication: HIV infection
     Dosage: 1 DF, MO (DOSAGE: 1 UNIT OF MEASURE: DOSING UNIT FREQUENCY OF ADMINISTRATION: MONTHLY)?DOSAGE: 1 MEA
     Route: 030
     Dates: start: 20221221, end: 20230322
  2. VOCABRIA [Suspect]
     Active Substance: CABOTEGRAVIR SODIUM
     Indication: HIV infection
     Dosage: 1 DF, MO (DOSAGE: 1 UNIT OF MEASURE: DOSING UNIT FREQUENCY OF ADMINISTRATION: MONTHLY)?DOSAGE: 1 MEA
     Route: 030
     Dates: start: 20221221, end: 20230322
  3. ATORVASTATIN [Concomitant]
     Active Substance: ATORVASTATIN
     Indication: Dyslipidaemia
     Dosage: 20 MG (DOSAGE: 20UNIT OF MEASUREMENT: MILLIGRAMS) VIA ADMINISTRATION: ORAL
     Route: 048
     Dates: start: 20190711
  4. NORVASC [Concomitant]
     Active Substance: AMLODIPINE BESYLATE
     Indication: Hypertension
     Dosage: 10 MG (DOSAGE: 10UNIT OF MEASUREMENT: MILLIGRAMS) VIA ADMINISTRATION: ORAL
     Route: 048
     Dates: start: 20190711
  5. BISOPROLOL FUMARATE [Concomitant]
     Active Substance: BISOPROLOL FUMARATE
     Indication: Hypertension
     Dosage: 10 MG (DOSAGE: 10UNIT OF MEASUREMENT: MILLIGRAMS) VIA ADMINISTRATION: ORAL
     Route: 048
  6. VALSARTAN [Concomitant]
     Active Substance: VALSARTAN
     Indication: Hypertension
     Dosage: 160 MG (DOSAGE: 160UNIT OF MEASUREMENT: MILLIGRAMS) VIA ADMINISTRATION: ORAL
     Route: 048
     Dates: start: 20190711
  7. VOCABRIA [Concomitant]
     Active Substance: CABOTEGRAVIR SODIUM
     Indication: Product used for unknown indication
     Route: 048

REACTIONS (3)
  - Erectile dysfunction [Not Recovered/Not Resolved]
  - Toothache [Not Recovered/Not Resolved]
  - Stomatitis [Not Recovered/Not Resolved]

NARRATIVE: CASE EVENT DATE: 20221221
